FAERS Safety Report 7912848-7 (Version None)
Quarter: 2011Q4

REPORT INFORMATION
  Report Type: 
  Country: None (occurrence: None)
  Receive Date: 20111114
  Receipt Date: 20111107
  Transmission Date: 20120403
  Serious: Yes (Death, Life-Threatening, Hospitalization)
  Sender: FDA-Public Use
  Company Number: GR-GLAXOSMITHKLINE-B0761402A

PATIENT
  Age: 71 Year
  Sex: Female

DRUGS (1)
  1. CEFUROXIME AXETIL [Suspect]
     Indication: INGROWING NAIL
     Dosage: 500MG TWICE PER DAY
     Route: 048
     Dates: start: 20111029, end: 20111031

REACTIONS (2)
  - MYOCARDIAL INFARCTION [None]
  - RESPIRATORY ARREST [None]
